FAERS Safety Report 9806396 (Version 4)
Quarter: 2014Q1

REPORT INFORMATION
  Report Type: Spontaneous
  Country: CN (occurrence: CN)
  Receive Date: 20140109
  Receipt Date: 20140206
  Transmission Date: 20141002
  Serious: Yes (Hospitalization, Disabling, Other)
  Sender: FDA-Public Use
  Company Number: CN-GILEAD-2014-0091422

PATIENT
  Age: 49 Year
  Sex: Male
  Weight: 55 kg

DRUGS (2)
  1. HEPSERA [Suspect]
     Indication: LIVER DISORDER
     Dosage: 1TAB PER DAY
     Route: 048
     Dates: start: 200712, end: 20131113
  2. CALCITROL                          /00508501/ [Concomitant]
     Indication: HYPOPHOSPHATAEMIA
     Dosage: 2 DF, QD
     Route: 048
     Dates: start: 20131105

REACTIONS (14)
  - Paralysis [Recovering/Resolving]
  - Abasia [Recovering/Resolving]
  - Arthralgia [Recovering/Resolving]
  - Osteomalacia [Recovering/Resolving]
  - Glomerulonephritis [Unknown]
  - Spinal osteoarthritis [Unknown]
  - Joint stiffness [Unknown]
  - Vasculitis [Unknown]
  - Rheumatoid arthritis [Unknown]
  - Ankylosing spondylitis [Unknown]
  - Chronic hepatitis [Unknown]
  - Bone pain [Not Recovered/Not Resolved]
  - Hypophosphataemia [Recovering/Resolving]
  - Nephropathy toxic [Recovering/Resolving]
